FAERS Safety Report 22288996 (Version 1)
Quarter: 2023Q2

REPORT INFORMATION
  Report Type: Spontaneous
  Country: IL (occurrence: IL)
  Receive Date: 20230505
  Receipt Date: 20230505
  Transmission Date: 20230722
  Serious: Yes (Hospitalization)
  Sender: FDA-Public Use
  Company Number: IL-SAREPTA THERAPEUTICS INC.-SRP2023-003300

PATIENT

DRUGS (1)
  1. EXONDYS 51 [Suspect]
     Active Substance: ETEPLIRSEN
     Indication: Product used for unknown indication
     Dosage: 1900 MILLIGRAM, WEEKLY
     Route: 042
     Dates: end: 202209

REACTIONS (1)
  - Asthma [Unknown]
